FAERS Safety Report 7266156-0 (Version None)
Quarter: 2011Q1

REPORT INFORMATION
  Report Type: 
  Country: None (occurrence: None)
  Receive Date: 20110131
  Receipt Date: 20110124
  Transmission Date: 20110831
  Serious: Yes (Death)
  Sender: FDA-Public Use
  Company Number: DE-JNJFOC-20090809519

PATIENT
  Sex: Female

DRUGS (4)
  1. REOPRO [Suspect]
     Indication: ILL-DEFINED DISORDER
     Dosage: @5:30
     Route: 042
     Dates: start: 20090818, end: 20090818
  2. GLIMEPIRIDE [Concomitant]
  3. GLUCOPHAGE [Concomitant]
  4. REOPRO [Suspect]
     Route: 042
     Dates: start: 20090818, end: 20090818

REACTIONS (1)
  - LACTIC ACIDOSIS [None]
